FAERS Safety Report 13291634 (Version 1)
Quarter: 2017Q1

REPORT INFORMATION
  Report Type: Spontaneous
  Country: US (occurrence: US)
  Receive Date: 20170302
  Receipt Date: 20170302
  Transmission Date: 20170428
  Serious: Yes (Other)
  Sender: FDA-Public Use
  Company Number: None

PATIENT
  Age: 50 Year
  Sex: Male
  Weight: 85.5 kg

DRUGS (1)
  1. SENSODYNE REPAIR AND PROTECT [Suspect]
     Active Substance: STANNOUS FLUORIDE
     Indication: TOOTH DISCOLOURATION
     Dosage: OTHER ROUTE:BRUSHING?
     Dates: start: 20170223, end: 20170301

REACTIONS (9)
  - Gingival swelling [None]
  - Pain [None]
  - Dry mouth [None]
  - Swelling [None]
  - Lip swelling [None]
  - Blister [None]
  - Lip pain [None]
  - Gingival pain [None]
  - Erythema [None]

NARRATIVE: CASE EVENT DATE: 20170223
